FAERS Safety Report 9779930 (Version 2)
Quarter: 2014Q1

REPORT INFORMATION
  Report Type: Report from Study
  Country: AT (occurrence: AT)
  Receive Date: 20131223
  Receipt Date: 20140102
  Transmission Date: 20141002
  Serious: Yes (Other)
  Sender: FDA-Public Use
  Company Number: AT-VERTEX PHARMACEUTICALS INC-2013-011985

PATIENT
  Sex: Female

DRUGS (3)
  1. INCIVO [Suspect]
     Indication: HEPATITIS C
     Dates: start: 20130626, end: 20130918
  2. PEGINTERFERON ALFA-2A [Concomitant]
  3. RIBAVIRIN [Concomitant]

REACTIONS (1)
  - Liver disorder [Unknown]
